FAERS Safety Report 22046540 (Version 1)
Quarter: 2023Q1

REPORT INFORMATION
  Report Type: Spontaneous
  Country: EG (occurrence: EG)
  Receive Date: 20230228
  Receipt Date: 20230228
  Transmission Date: 20230417
  Serious: Yes (Hospitalization)
  Sender: FDA-Public Use
  Company Number: EG-NOVOPROD-1022940

PATIENT
  Sex: Male

DRUGS (3)
  1. ACTRAPID [Suspect]
     Active Substance: INSULIN HUMAN
     Indication: Type 1 diabetes mellitus
     Dosage: 25 IU, TID
     Route: 064
  2. ASPIRIN [Concomitant]
     Active Substance: ASPIRIN
     Indication: Type 1 diabetes mellitus
     Dosage: 30 IU, QD (AT NIGHT)
     Route: 064
  3. LANTUS [Concomitant]
     Active Substance: INSULIN GLARGINE
     Indication: Anticoagulant therapy
     Dosage: 3 TAB/DAY
     Route: 064

REACTIONS (2)
  - Neonatal tachypnoea [Recovered/Resolved]
  - Foetal exposure during pregnancy [Recovered/Resolved]
